FAERS Safety Report 6014918-X (Version None)
Quarter: 2008Q4

REPORT INFORMATION
  Report Type: 
  Country: None (occurrence: None)
  Receive Date: 20081219
  Receipt Date: 20081217
  Transmission Date: 20090506
  Serious: Yes (Hospitalization)
  Sender: FDA-Public Use
  Company Number: FR-B.I. PHARMACEUTICALS,INC./RIDGEFIELD-2008-FF-00908FF

PATIENT
  Sex: Male

DRUGS (7)
  1. MICARDIS [Suspect]
     Indication: HYPERTENSION
     Dosage: 40MG
     Route: 048
     Dates: end: 20080221
  2. ZESTRIL [Concomitant]
     Indication: HYPERTENSION
     Dosage: 20MG
     Route: 048
     Dates: end: 20080521
  3. CHRONADALATE [Concomitant]
     Indication: HYPERTENSION
     Dosage: 30MG
     Route: 048
     Dates: end: 20080521
  4. IMOVANE [Concomitant]
     Indication: INSOMNIA
     Route: 048
     Dates: end: 20080521
  5. TAHOR [Concomitant]
     Indication: HYPERCHOLESTEROLAEMIA
     Dosage: 10MG
     Route: 048
  6. CORGARD [Concomitant]
     Indication: HYPERTENSION
     Dosage: 80MG
     Route: 048
  7. PLAVIX [Concomitant]
     Indication: ATHEROSCLEROSIS PROPHYLAXIS
     Route: 048

REACTIONS (1)
  - HYPONATRAEMIA [None]
